FAERS Safety Report 7380518-2 (Version None)
Quarter: 2011Q1

REPORT INFORMATION
  Report Type: 
  Country: None (occurrence: None)
  Receive Date: 20110329
  Receipt Date: 20090218
  Transmission Date: 20110831
  Serious: Yes (Hospitalization, Other)
  Sender: FDA-Public Use
  Company Number: US-BAYER-201040165NA

PATIENT
  Sex: Male
  Weight: 93 kg

DRUGS (14)
  1. ANCEF [Concomitant]
     Dosage: 2 G, UNK
     Route: 042
     Dates: start: 19961112, end: 19961112
  2. LIDOCAINE [Concomitant]
     Dosage: 100-75
     Route: 042
     Dates: start: 19961112, end: 19961112
  3. HESPAN IN EXCEL PLASTIC CONTAINER [Concomitant]
     Dosage: 300 ML, UNK
     Route: 042
     Dates: start: 19961112, end: 19961112
  4. PAVULON [Concomitant]
     Dosage: 10 MG, UNK
     Route: 042
     Dates: start: 19961112, end: 19961112
  5. SOLU-MEDROL [Concomitant]
     Dosage: 1 G, UNK
     Route: 042
     Dates: start: 19961112, end: 19961112
  6. TRASYLOL [Suspect]
     Dosage: 100 CC LOADING DOSE, THEN 25CC/H
     Dates: start: 19961112, end: 19961112
  7. LASIX [Concomitant]
     Dosage: 10 MG, UNK
     Route: 042
     Dates: start: 19961112, end: 19961112
  8. INSULIN REGULAR [INSULIN PORCINE] [Concomitant]
     Dosage: 10 U, UNK
     Route: 042
     Dates: start: 19961112, end: 19961112
  9. EPHEDRIN [Concomitant]
     Dosage: 10 MG, UNK
     Route: 042
     Dates: start: 19961112, end: 19961112
  10. HEPARIN SODIUM [Concomitant]
     Dosage: 21000 U, UNK
     Route: 042
     Dates: start: 19961112, end: 19961112
  11. PROTAMINE SULFATE [Concomitant]
     Dosage: 220 MG, UNK
     Route: 042
     Dates: start: 19961112, end: 19961112
  12. TRASYLOL [Suspect]
     Indication: CORONARY ARTERY BYPASS
     Dosage: 1 ML, UNK
     Route: 042
     Dates: start: 19961112, end: 19961112
  13. ANCEF [Concomitant]
     Dosage: 1 G
     Route: 042
     Dates: start: 19961112, end: 19961112
  14. PROTAMINE SULFATE [Concomitant]
     Dosage: 50 MG
     Route: 042
     Dates: start: 19961112, end: 19961112

REACTIONS (12)
  - RENAL INJURY [None]
  - FEAR [None]
  - RENAL IMPAIRMENT [None]
  - ANXIETY [None]
  - MYOCARDIAL INFARCTION [None]
  - INJURY [None]
  - STRESS [None]
  - MULTI-ORGAN FAILURE [None]
  - RENAL FAILURE [None]
  - EMOTIONAL DISTRESS [None]
  - UNEVALUABLE EVENT [None]
  - PAIN [None]
